FAERS Safety Report 10185364 (Version 1)
Quarter: 2014Q2

REPORT INFORMATION
  Report Type: Spontaneous
  Country: PL (occurrence: PL)
  Receive Date: 20140521
  Receipt Date: 20140521
  Transmission Date: 20141212
  Serious: Yes (Other)
  Sender: FDA-Public Use
  Company Number: PHHY2014PL061174

PATIENT
  Age: 81 Year
  Sex: Female

DRUGS (5)
  1. AMLOPIN [Suspect]
     Dosage: 5 MG, QD
     Route: 048
     Dates: start: 201404, end: 201405
  2. METYPRED [Concomitant]
     Route: 048
  3. ACARD [Concomitant]
     Route: 048
  4. GALPENT [Concomitant]
     Route: 048
  5. BETO ZK [Concomitant]
     Dosage: 25 MG, UNK
     Route: 048

REACTIONS (7)
  - Pancytopenia [Recovered/Resolved]
  - Haematochezia [Recovered/Resolved]
  - Rhinorrhoea [Recovered/Resolved]
  - Muscle spasms [Recovered/Resolved]
  - Arthralgia [Recovered/Resolved]
  - Constipation [Recovered/Resolved]
  - Nausea [Recovered/Resolved]
